FAERS Safety Report 6908274-X (Version None)
Quarter: 2010Q3

REPORT INFORMATION
  Report Type: 
  Country: None (occurrence: None)
  Receive Date: 20100708
  Receipt Date: 20090225
  Transmission Date: 20110219
  Serious: Yes (Other)
  Sender: FDA-Public Use
  Company Number: 2009164949

PATIENT
  Age: 64 Year
  Sex: Male
  Weight: 107.9 kg

DRUGS (9)
  1. CHANTIX [Suspect]
     Indication: SMOKING CESSATION THERAPY
     Dates: start: 20081003, end: 20081203
  2. RANITIDINE [Concomitant]
  3. ASPIRIN [Concomitant]
  4. POTASSIUM CHLORIDE [Concomitant]
  5. HYDROCHLOROTHIAZIDE [Concomitant]
  6. SIMVASTATIN [Concomitant]
  7. VITAMIN D (ERGOCALCIFEROL0 [Concomitant]
  8. DOXAZOSIN MESYLATE [Concomitant]
  9. ENAPRIL (ENALAPRIL MALEATE) [Concomitant]

REACTIONS (2)
  - PSYCHIATRIC SYMPTOM [None]
  - SUICIDAL IDEATION [None]
